FAERS Safety Report 5023691-3 (Version None)
Quarter: 2006Q2

REPORT INFORMATION
  Report Type: 
  Country: None (occurrence: None)
  Receive Date: 20060428
  Receipt Date: 20050314
  Transmission Date: 20061013
  Serious: Yes (Other)
  Sender: FDA-Public Use
  Company Number: US-2005-003869

PATIENT
  Age: 22 Year
  Sex: Male
  Weight: 95.2 kg

DRUGS (2)
  1. LEUKINE [Suspect]
     Indication: PILONIDAL CYST
     Dosage: 250 UG/M2, 1 DOSE, INTRALESIONAL
     Route: 026
     Dates: start: 20050310, end: 20050310
  2. AUGMENTIN /UNK/ (AMOXICILLIN TRIHYDRATE, CLAVULANATE POTASSIUM) [Concomitant]

REACTIONS (7)
  - ANAPHYLACTOID REACTION [None]
  - BACK PAIN [None]
  - BONE PAIN [None]
  - CHEST PAIN [None]
  - DIZZINESS [None]
  - DYSPNOEA [None]
  - HYPOTENSION [None]
